FAERS Safety Report 16209788 (Version 1)
Quarter: 2019Q2

REPORT INFORMATION
  Report Type: Spontaneous
  Country: US (occurrence: US)
  Receive Date: 20190417
  Receipt Date: 20190417
  Transmission Date: 20190711
  Serious: No
  Sender: FDA-Public Use
  Company Number: US-GLAXOSMITHKLINE-US2019069147

PATIENT
  Age: 71 Year
  Sex: Male

DRUGS (1)
  1. TRELEGY ELLIPTA [Suspect]
     Active Substance: FLUTICASONE FUROATE\UMECLIDINIUM BROMIDE\VILANTEROL TRIFENATATE
     Indication: CHRONIC OBSTRUCTIVE PULMONARY DISEASE
     Dosage: UNK UNK, U
     Route: 055
     Dates: start: 2018

REACTIONS (8)
  - Back disorder [Unknown]
  - Tooth extraction [Unknown]
  - Depression [Unknown]
  - Neuralgia [Unknown]
  - Dyspnoea [Unknown]
  - Cervical radiculopathy [Unknown]
  - Dandruff [Unknown]
  - Alopecia [Unknown]
